FAERS Safety Report 6761744-X (Version None)
Quarter: 2010Q2

REPORT INFORMATION
  Report Type: 
  Country: None (occurrence: None)
  Receive Date: 20100609
  Receipt Date: 20100604
  Transmission Date: 20101027
  Serious: Yes (Other)
  Sender: FDA-Public Use
  Company Number: CA-WYE-G06233810

PATIENT
  Age: 62 Year
  Sex: Female

DRUGS (2)
  1. TORISEL [Suspect]
     Route: 042
     Dates: start: 20100501
  2. AVALIDE [Concomitant]

REACTIONS (2)
  - ABDOMINAL PAIN [None]
  - PORPHYRIA [None]
